FAERS Safety Report 4667139-7 (Version None)
Quarter: 2005Q2

REPORT INFORMATION
  Report Type: 
  Country: None (occurrence: None)
  Receive Date: 20050520
  Receipt Date: 20040409
  Transmission Date: 20051028
  Serious: Yes (Other)
  Sender: FDA-Public Use
  Company Number: PHEH2004US04075

PATIENT
  Age: 68 Year
  Sex: Male

DRUGS (9)
  1. CYCLOPHOSPHAMIDE [Concomitant]
     Dosage: 5610 MG, ONCE/SINGLE
     Dates: start: 20021129, end: 20021129
  2. EPOETIN ALFA [Concomitant]
     Dosage: 40,000 UNITS X2 TREATMENTS
     Dates: start: 20021024, end: 20021107
  3. MELPHALAN [Concomitant]
     Dosage: 130MG X 2 TREATMENTS
     Dates: start: 20030114, end: 20030115
  4. PREDNISONE TAB [Concomitant]
     Dosage: 40-50MG X 2 TREATMENTS
     Dates: start: 20030102, end: 20030801
  5. RITUXIMAB [Concomitant]
     Dosage: 720 MG OVWER 4 HOURS
  6. DEXAMETHASONE SODIUM PHOSPHATE [Concomitant]
     Dosage: 20MG OVER 15 MINUTES
     Dates: start: 20030114, end: 20030115
  7. FILGRASTIM [Concomitant]
     Dosage: 360 MG X 22 TREATMENTS
     Dates: start: 20030118, end: 20030128
  8. ONDANSETRON [Concomitant]
     Dosage: 8-24 MG OVER 15-25 HOURS
     Dates: start: 20030114, end: 20030119
  9. ZOMETA [Suspect]
     Dosage: 4 MG OVER 15 MINUTES
     Dates: start: 20021024, end: 20030819

REACTIONS (2)
  - OSTEONECROSIS [None]
  - SEQUESTRECTOMY [None]
